FAERS Safety Report 7650138-0 (Version None)
Quarter: 2011Q3

REPORT INFORMATION
  Report Type: 
  Country: None (occurrence: None)
  Receive Date: 20110802
  Receipt Date: 20110728
  Transmission Date: 20111222
  Serious: Yes (Hospitalization)
  Sender: FDA-Public Use
  Company Number: BR-ROCHE-769841

PATIENT
  Age: 70 Year
  Sex: Female
  Weight: 68 kg

DRUGS (4)
  1. CAL-D3 [Concomitant]
  2. LIPITOR [Concomitant]
  3. ENDOFOLIN [Concomitant]
  4. BONIVA [Suspect]
     Indication: OSTEOPOROSIS
     Dosage: 150 MG/TABLET, STOP DATE: 2011
     Route: 048
     Dates: start: 20100101, end: 20110101

REACTIONS (1)
  - GASTRIC ADENOMA [None]
